FAERS Safety Report 7950611-1 (Version None)
Quarter: 2011Q4

REPORT INFORMATION
  Report Type: 
  Country: None (occurrence: None)
  Receive Date: 20111130
  Receipt Date: 20111124
  Transmission Date: 20120403
  Serious: Yes (Other)
  Sender: FDA-Public Use
  Company Number: AR-ROCHE-1007735

PATIENT
  Sex: Female

DRUGS (1)
  1. LUCENTIS [Suspect]
     Indication: CORNEAL DISORDER
     Route: 050
     Dates: start: 20100201

REACTIONS (5)
  - VISUAL IMPAIRMENT [None]
  - CORNEAL SCAR [None]
  - LACRIMATION INCREASED [None]
  - FOREIGN BODY SENSATION IN EYES [None]
  - DRUG INEFFECTIVE [None]
